FAERS Safety Report 10694450 (Version 2)
Quarter: 2015Q1

REPORT INFORMATION
  Report Type: Spontaneous
  Country: IT (occurrence: IT)
  Receive Date: 20150107
  Receipt Date: 20150107
  Transmission Date: 20150721
  Serious: Yes (Other)
  Sender: FDA-Public Use
  Company Number: IT-RANBAXY-2012R1-53877

PATIENT
  Age: 77 Year
  Sex: Female

DRUGS (1)
  1. FENOFIBRATE TABLETS [Suspect]
     Active Substance: FENOFIBRATE
     Indication: DYSLIPIDAEMIA
     Dosage: UNK
     Route: 048

REACTIONS (1)
  - Type IV hypersensitivity reaction [Unknown]
